FAERS Safety Report 7966392-1 (Version None)
Quarter: 2011Q4

REPORT INFORMATION
  Report Type: 
  Country: None (occurrence: None)
  Receive Date: 20111208
  Receipt Date: 20111206
  Transmission Date: 20120403
  Serious: Yes (Other)
  Sender: FDA-Public Use
  Company Number: GB-PFIZER INC-2011297308

PATIENT

DRUGS (1)
  1. SERTRALINE HYDROCHLORIDE [Suspect]

REACTIONS (2)
  - LIVER FUNCTION TEST ABNORMAL [None]
  - HEPATIC STEATOSIS [None]
